FAERS Safety Report 4674599-4 (Version None)
Quarter: 2005Q2

REPORT INFORMATION
  Report Type: 
  Country: None (occurrence: None)
  Receive Date: 20050526
  Receipt Date: 20050523
  Transmission Date: 20051028
  Serious: Yes (Hospitalization, Disabling)
  Sender: FDA-Public Use
  Company Number: PHFR2005GB01910

PATIENT
  Age: 4 Year
  Sex: Female

DRUGS (1)
  1. BACLOFEN [Suspect]
     Indication: MUSCLE SPASTICITY
     Dosage: 2.5MG MANE; 5MG NOCTE
     Route: 048
     Dates: start: 20020101, end: 20050101

REACTIONS (1)
  - COLITIS [None]
